FAERS Safety Report 7602530-8 (Version None)
Quarter: 2011Q3

REPORT INFORMATION
  Report Type: 
  Country: None (occurrence: None)
  Receive Date: 20110707
  Receipt Date: 20110406
  Transmission Date: 20111222
  Serious: Yes (Hospitalization, Other)
  Sender: FDA-Public Use
  Company Number: US-CYPR-2011-000012

PATIENT
  Sex: Male
  Weight: 122 kg

DRUGS (17)
  1. GABAPENTIN [Concomitant]
  2. CARVEDILOL [Concomitant]
  3. CYPHER STENT [Concomitant]
  4. PREVACID [Concomitant]
  5. NOVOLIN 70/30 [Concomitant]
  6. CALCIUM CARBONATE [Concomitant]
  7. ASPIRIN [Suspect]
     Indication: CORONARY ARTERY DISEASE
     Dosage: (81 MG QD ORAL), (325 MG QD ORAL)
     Route: 048
     Dates: start: 20091222, end: 20101217
  8. ASPIRIN [Suspect]
     Indication: CORONARY ARTERY DISEASE
     Dosage: (81 MG QD ORAL), (325 MG QD ORAL)
     Route: 048
     Dates: start: 20101218
  9. ATORVASTATIN [Concomitant]
  10. TRICOR [Concomitant]
  11. FEXOFENADINE [Concomitant]
  12. CLOPIDOGREL [Suspect]
     Indication: ANTIPLATELET THERAPY
     Dosage: (75 MG QD ORAL)
     Route: 048
     Dates: start: 20100914, end: 20101216
  13. ISOSORBIDE MONONITRATE [Concomitant]
  14. COZAAR [Concomitant]
  15. VITAMIN D [Concomitant]
  16. FISH OIL [Concomitant]
  17. METFORMIN HYDROCHLORIDE [Concomitant]

REACTIONS (1)
  - CORONARY ARTERY DISEASE [None]
